FAERS Safety Report 14499203 (Version 1)
Quarter: 2018Q1

REPORT INFORMATION
  Report Type: Spontaneous
  Country: US (occurrence: US)
  Receive Date: 20180207
  Receipt Date: 20180207
  Transmission Date: 20180509
  Serious: No
  Sender: FDA-Public Use
  Company Number: US-JAZZ-2017-US-005550

PATIENT
  Sex: Male

DRUGS (4)
  1. PRIALT [Suspect]
     Active Substance: ZICONOTIDE ACETATE
     Indication: SPINAL PAIN
  2. PRIALT [Suspect]
     Active Substance: ZICONOTIDE ACETATE
     Indication: COMPLEX REGIONAL PAIN SYNDROME
  3. PRIALT [Suspect]
     Active Substance: ZICONOTIDE ACETATE
     Indication: PAIN
     Dosage: UNK ?G, QH
     Route: 037
  4. MORPHINE [Concomitant]
     Active Substance: MORPHINE
     Dosage: UNK MG, QH
     Route: 037

REACTIONS (2)
  - Feeling abnormal [Unknown]
  - Device issue [Unknown]

NARRATIVE: CASE EVENT DATE: 2006
